FAERS Safety Report 10598798 (Version 2)
Quarter: 2014Q4

REPORT INFORMATION
  Report Type: Spontaneous
  Country: JP (occurrence: JP)
  Receive Date: 20141121
  Receipt Date: 20141224
  Transmission Date: 20150529
  Serious: Yes (Other)
  Sender: FDA-Public Use
  Company Number: JP-ABBVIE-14P-087-1311020-00

PATIENT
  Age: 55 Year
  Sex: Female

DRUGS (1)
  1. LIPIDIL [Suspect]
     Active Substance: FENOFIBRATE
     Indication: PRODUCT USED FOR UNKNOWN INDICATION
     Route: 065
     Dates: start: 201009, end: 201010

REACTIONS (1)
  - Liver disorder [Unknown]
